FAERS Safety Report 23470628 (Version 2)
Quarter: 2024Q1

REPORT INFORMATION
  Report Type: Spontaneous
  Country: UY (occurrence: UY)
  Receive Date: 20240202
  Receipt Date: 20240311
  Transmission Date: 20240409
  Serious: No
  Sender: FDA-Public Use
  Company Number: UY-PFIZER INC-PV202400005727

PATIENT
  Age: 11 Year
  Sex: Female

DRUGS (1)
  1. GENOTROPIN [Suspect]
     Active Substance: SOMATROPIN
     Indication: Growth hormone deficiency
     Dosage: 0.6 TO 1 MG, 7 TIMES PER WEEK
     Dates: start: 20230426, end: 20240110

REACTIONS (3)
  - Drug dose omission by device [Not Recovered/Not Resolved]
  - Device failure [Not Recovered/Not Resolved]
  - Device information output issue [Not Recovered/Not Resolved]

NARRATIVE: CASE EVENT DATE: 20240110
